FAERS Safety Report 4580702-7 (Version None)
Quarter: 2005Q1

REPORT INFORMATION
  Report Type: 
  Country: None (occurrence: None)
  Receive Date: 20050214
  Receipt Date: 20040514
  Transmission Date: 20050727
  Serious: No
  Sender: FDA-Public Use
  Company Number: US-GLAXOSMITHKLINE-A0510919A

PATIENT
  Age: 19 Year
  Sex: Female

DRUGS (4)
  1. LAMICTAL [Suspect]
     Indication: BIPOLAR DISORDER
     Route: 048
     Dates: start: 20030301
  2. PROZAC [Concomitant]
  3. LUVOX [Concomitant]
  4. SEROQUEL [Concomitant]

REACTIONS (1)
  - GINGIVITIS ULCERATIVE [None]
